FAERS Safety Report 7232544-1 (Version None)
Quarter: 2011Q1

REPORT INFORMATION
  Report Type: 
  Country: None (occurrence: None)
  Receive Date: 20110119
  Receipt Date: 20110114
  Transmission Date: 20110831
  Serious: Yes (Hospitalization, Other)
  Sender: FDA-Public Use
  Company Number: JP-BAYER-2010-006477

PATIENT
  Age: 63 Year
  Sex: Male
  Weight: 55 kg

DRUGS (4)
  1. LOXOPROFEN [Concomitant]
     Indication: CANCER PAIN
     Dosage: DAILY DOSE 120 MG
     Route: 065
     Dates: start: 20101106
  2. NEXAVAR [Suspect]
     Indication: HEPATIC NEOPLASM MALIGNANT
     Dosage: DAILY DOSE 800 MG
     Route: 048
     Dates: start: 20100816, end: 20101215
  3. BARACLUDE [Concomitant]
     Indication: HEPATITIS B
     Dosage: DAILY DOSE .5 MG
     Route: 048
     Dates: start: 20100604
  4. NEXAVAR [Suspect]
     Dosage: DAILY DOSE 400 MG
     Route: 048
     Dates: start: 20110111

REACTIONS (2)
  - JAUNDICE [None]
  - HEPATIC FUNCTION ABNORMAL [None]
